FAERS Safety Report 7098486-X (Version None)
Quarter: 2010Q4

REPORT INFORMATION
  Report Type: 
  Country: None (occurrence: None)
  Receive Date: 20101112
  Receipt Date: 20101102
  Transmission Date: 20110411
  Serious: Yes (Other)
  Sender: FDA-Public Use
  Company Number: US-SANOFI-AVENTIS-2010SA054803

PATIENT
  Age: 49 Year
  Sex: Female
  Weight: 58.97 kg

DRUGS (4)
  1. LOVENOX [Suspect]
     Indication: DEEP VEIN THROMBOSIS
     Route: 058
     Dates: start: 20100727, end: 20100907
  2. WARFARIN [Suspect]
     Route: 048
     Dates: start: 20100823
  3. WARFARIN [Suspect]
     Route: 048
     Dates: start: 20100101
  4. ASPIRIN [Concomitant]
     Indication: PROTEIN C DEFICIENCY
     Route: 048
     Dates: start: 20080101, end: 20100917

REACTIONS (12)
  - ABDOMINAL DISTENSION [None]
  - ABDOMINAL PAIN [None]
  - ABDOMINAL TENDERNESS [None]
  - ALOPECIA [None]
  - BACK PAIN [None]
  - HAEMORRHAGIC OVARIAN CYST [None]
  - INCORRECT ROUTE OF DRUG ADMINISTRATION [None]
  - INJECTION SITE PAIN [None]
  - INTERNATIONAL NORMALISED RATIO INCREASED [None]
  - INTRA-ABDOMINAL PRESSURE INCREASED [None]
  - MADAROSIS [None]
  - PROTHROMBIN TIME PROLONGED [None]
